FAERS Safety Report 8347480-7 (Version None)
Quarter: 2012Q2

REPORT INFORMATION
  Report Type: 
  Country: None (occurrence: None)
  Receive Date: 20120509
  Receipt Date: 20120427
  Transmission Date: 20120825
  Serious: Yes (Hospitalization)
  Sender: FDA-Public Use
  Company Number: GB-NOVOPROD-348034

PATIENT
  Age: 56 Year
  Sex: Female
  Weight: 92.7 kg

DRUGS (1)
  1. LIRAGLUTIDE FLEXPEN [Suspect]
     Indication: OBESITY
     Dosage: 3.0 MG, QD
     Route: 058
     Dates: start: 20110902

REACTIONS (1)
  - PARATHYROIDECTOMY [None]
